FAERS Safety Report 6957860-X (Version None)
Quarter: 2010Q3

REPORT INFORMATION
  Report Type: 
  Country: None (occurrence: None)
  Receive Date: 20100831
  Receipt Date: 20100817
  Transmission Date: 20110219
  Serious: Yes (Hospitalization)
  Sender: FDA-Public Use
  Company Number: US-BAYER-201026241NA

PATIENT
  Age: 47 Year
  Sex: Male

DRUGS (3)
  1. BETASERON [Suspect]
     Indication: RELAPSING-REMITTING MULTIPLE SCLEROSIS
     Route: 058
     Dates: start: 19960101, end: 20050101
  2. TYSABRI [Concomitant]
  3. RADIOACTIVE IODINE [Concomitant]
     Indication: THYROTOXIC CRISIS
     Dates: start: 20050101

REACTIONS (4)
  - HYPERTHYROIDISM [None]
  - MOBILITY DECREASED [None]
  - MULTIPLE SCLEROSIS RELAPSE [None]
  - THYROTOXIC CRISIS [None]
